FAERS Safety Report 19248538 (Version 1)
Quarter: 2021Q2

REPORT INFORMATION
  Report Type: Spontaneous
  Country: US (occurrence: US)
  Receive Date: 20210512
  Receipt Date: 20210512
  Transmission Date: 20210717
  Serious: No
  Sender: FDA-Public Use
  Company Number: US-UCBSA-2020030697

PATIENT
  Sex: Male

DRUGS (1)
  1. CIMZIA [Suspect]
     Active Substance: CERTOLIZUMAB PEGOL
     Indication: PRODUCT USED FOR UNKNOWN INDICATION
     Dosage: 400 MILLIGRAM,  OTHER
     Route: 058
     Dates: start: 202005

REACTIONS (4)
  - Throat clearing [Unknown]
  - Injection site urticaria [Unknown]
  - Drug ineffective [Unknown]
  - Injection site vesicles [Unknown]

NARRATIVE: CASE EVENT DATE: 2020
